FAERS Safety Report 8789873 (Version 1)
Quarter: 2012Q4

REPORT INFORMATION
  Report Type: 
  Country: BR (occurrence: BR)
  Receive Date: 20120917
  Receipt Date: 20120917
  Transmission Date: 20130627
  Serious: Yes (Death, Other)
  Sender: FDA-Public Use
  Company Number: BR-PFIZER INC-2012226501

PATIENT
  Age: 65 Year
  Sex: Male

DRUGS (3)
  1. SUTENT [Suspect]
     Indication: RENAL CANCER
     Dosage: 50 mg, 1x/day (first cycle)
     Route: 048
     Dates: start: 20120625
  2. CODEINE [Concomitant]
  3. SPIRONOLACTONE [Concomitant]

REACTIONS (1)
  - Death [Fatal]
